FAERS Safety Report 24093656 (Version 1)
Quarter: 2024Q3

REPORT INFORMATION
  Report Type: Report from Study
  Country: US (occurrence: US)
  Receive Date: 20240715
  Receipt Date: 20240715
  Transmission Date: 20241016
  Serious: Yes (Other)
  Sender: ABBVIE
  Company Number: US-ABBVIE-5836393

PATIENT
  Age: 56 Year
  Sex: Female

DRUGS (3)
  1. SKYRIZI [Suspect]
     Active Substance: RISANKIZUMAB-RZAA
     Indication: Psoriasis
     Dosage: DOSAGE: 150 MG/ML STRENGTH: 150MG/ML?WEEK 0
     Route: 058
     Dates: start: 20230623, end: 20230623
  2. SKYRIZI [Suspect]
     Active Substance: RISANKIZUMAB-RZAA
     Dosage: DOSAGE: 150 MG/ML STRENGTH: 150MG/ML?WEEK 4
     Route: 058
     Dates: start: 20230721, end: 20230721
  3. SKYRIZI [Suspect]
     Active Substance: RISANKIZUMAB-RZAA
     Dosage: DOSAGE: 150 MG/ML STRENGTH: 150MG/ML
     Route: 058
     Dates: start: 20231013

REACTIONS (4)
  - Knee arthroplasty [Unknown]
  - Femur fracture [Unknown]
  - Tibia fracture [Unknown]
  - Fracture delayed union [Unknown]

NARRATIVE: CASE EVENT DATE: 20240301
